FAERS Safety Report 14484345 (Version 1)
Quarter: 2018Q1

REPORT INFORMATION
  Report Type: Spontaneous
  Country: US (occurrence: US)
  Receive Date: 20180202
  Receipt Date: 20180202
  Transmission Date: 20180509
  Serious: No
  Sender: FDA-Public Use
  Company Number: None

PATIENT
  Age: 70 Year
  Sex: Female

DRUGS (1)
  1. TIZANIDINE. [Suspect]
     Active Substance: TIZANIDINE
     Indication: HYPOTONIA
     Route: 048
     Dates: start: 20171208, end: 20180201

REACTIONS (3)
  - Drug ineffective [None]
  - Muscle spasms [None]
  - Product substitution issue [None]
